FAERS Safety Report 5543734-8 (Version None)
Quarter: 2007Q4

REPORT INFORMATION
  Report Type: 
  Country: None (occurrence: None)
  Receive Date: 20071206
  Receipt Date: 20071121
  Transmission Date: 20080405
  Serious: Yes (Hospitalization)
  Sender: FDA-Public Use
  Company Number: 020939

PATIENT
  Age: 55 Year
  Sex: Male

DRUGS (15)
  1. ADDERALL 10 [Suspect]
     Indication: ATTENTION DEFICIT/HYPERACTIVITY DISORDER
     Dosage: 10 MG, QD, ORAL; 20 MG, QD, ORAL; 30 MG, QD, ORAL
     Route: 048
     Dates: start: 20050101, end: 20060101
  2. ADDERALL 10 [Suspect]
     Indication: ATTENTION DEFICIT/HYPERACTIVITY DISORDER
     Dosage: 10 MG, QD, ORAL; 20 MG, QD, ORAL; 30 MG, QD, ORAL
     Route: 048
     Dates: start: 20060101, end: 20060101
  3. ADDERALL 10 [Suspect]
     Indication: ATTENTION DEFICIT/HYPERACTIVITY DISORDER
     Dosage: 10 MG, QD, ORAL; 20 MG, QD, ORAL; 30 MG, QD, ORAL
     Route: 048
     Dates: start: 20060101
  4. HIV MEDICATIONS(HOPANTENATE CALCIUM) [Suspect]
     Indication: HIV INFECTION
  5. PENTAMIDINE(PENTAMIDINE) [Suspect]
     Dosage: Q4WEEKS, INTRAVENOUS
     Route: 042
  6. VALIUM [Concomitant]
  7. ZERIT [Concomitant]
  8. ZIAGEN [Concomitant]
  9. HYDROXYUREA [Concomitant]
  10. EPIVIR [Concomitant]
  11. AVODART [Concomitant]
  12. FLOMAX [Concomitant]
  13. NEXIUM [Concomitant]
  14. LORAZEPAM [Concomitant]
  15. TEMAZEPAM [Concomitant]

REACTIONS (11)
  - ACUTE RESPIRATORY FAILURE [None]
  - ANXIETY [None]
  - DEPRESSION [None]
  - DRUG TOLERANCE [None]
  - GASTROOESOPHAGEAL REFLUX DISEASE [None]
  - INFUSION SITE PRURITUS [None]
  - INFUSION SITE RASH [None]
  - INTENTIONAL OVERDOSE [None]
  - PSYCHOTIC DISORDER [None]
  - SUICIDAL IDEATION [None]
  - SUICIDE ATTEMPT [None]
